FAERS Safety Report 8063714 (Version 5)
Quarter: 2013Q4

REPORT INFORMATION
  Report Type: Report from Study
  Country: ZA (occurrence: ZA)
  Receive Date: 20110801
  Receipt Date: 20131107
  Transmission Date: 20140711
  Serious: Yes (Death, Other)
  Sender: FDA-Public Use
  Company Number: PHHY2011ZA66194

PATIENT
  Age: 76 Year
  Sex: Female
  Weight: 45 kg

DRUGS (10)
  1. GLEEVEC [Suspect]
     Indication: GASTROINTESTINAL STROMAL TUMOUR
     Dosage: 400 MG, DAILY
     Route: 048
     Dates: start: 20041102
  2. GLEEVEC [Suspect]
     Dosage: 800 MG, DAILY
     Route: 048
     Dates: start: 20100420
  3. GLEEVEC [Suspect]
     Dosage: 800 MG, DAILY
     Route: 048
  4. METOCLOPRAMIDE [Concomitant]
     Indication: NAUSEA
     Dosage: 10 MG, TID
     Dates: start: 2004
  5. PARACETAMOL [Concomitant]
     Indication: PAIN
     Dosage: 1 G, 4 TIMES DAILY
     Dates: start: 2004
  6. TRAMADOL [Concomitant]
     Indication: PAIN
     Dosage: 50 MG, 4 TIMES DAILY
     Dates: start: 20110802
  7. FERROUS SULPHATE [Concomitant]
     Indication: ANAEMIA
     Dosage: 400 MG, DAILY
     Dates: start: 2011
  8. IMODIUM [Concomitant]
     Indication: DIARRHOEA
     Dosage: 1 PRN
     Dates: start: 2013
  9. MORPHINE [Concomitant]
     Indication: PAIN
     Dosage: 10 MG, DAILY
     Dates: start: 201303
  10. DIAZEPAM [Concomitant]
     Dosage: 15 MG, UNK
     Dates: start: 201303

REACTIONS (5)
  - Death [Fatal]
  - Abdominal mass [Unknown]
  - Gastrointestinal stromal tumour [Not Recovered/Not Resolved]
  - Malignant neoplasm progression [Not Recovered/Not Resolved]
  - General physical health deterioration [Unknown]
